FAERS Safety Report 5262828-8 (Version None)
Quarter: 2007Q1

REPORT INFORMATION
  Report Type: 
  Country: None (occurrence: None)
  Receive Date: 20070312
  Receipt Date: 20070302
  Transmission Date: 20070707
  Serious: Yes (Hospitalization)
  Sender: FDA-Public Use
  Company Number: GB-ROCHE-480858

PATIENT
  Age: 60 Year
  Sex: Male
  Weight: 88 kg

DRUGS (11)
  1. XENICAL [Suspect]
     Indication: OBESITY
     Dosage: BEFORE MEAL
     Route: 048
     Dates: start: 20060814, end: 20061208
  2. AMIODARONE HCL [Suspect]
     Indication: DRUG USE FOR UNKNOWN INDICATION
     Route: 048
     Dates: start: 19960517, end: 20061208
  3. CHLORPHENIRAMINE MALEATE [Concomitant]
  4. WARFARIN SODIUM [Concomitant]
  5. GLYCERYL TRINITRATE [Concomitant]
     Route: 060
  6. SIMVASTATIN [Concomitant]
  7. FLUOXETINE HYDROCHLORIDE [Concomitant]
  8. LISINOPRIL [Concomitant]
  9. DUODERM [Concomitant]
     Dosage: REPORTED AS DUODERM EXTRA THICK DRESSINGS SQUARE 10CMX10CM USE AS DIRECTED
  10. ACETAMINOPHEN [Concomitant]
     Dosage: PRN
  11. MAXITROL [Concomitant]
     Dosage: AS DIRECTED BY OPTHALMOLOGIST
     Route: 047

REACTIONS (4)
  - DEHYDRATION [None]
  - FACIAL BONES FRACTURE [None]
  - HYPOTENSION [None]
  - MALAISE [None]
